FAERS Safety Report 20440614 (Version 1)
Quarter: 2022Q1

REPORT INFORMATION
  Report Type: Spontaneous
  Country: None (occurrence: GB)
  Receive Date: 20220207
  Receipt Date: 20220207
  Transmission Date: 20220423
  Serious: Yes (Other)
  Sender: FDA-Public Use
  Company Number: GB-Ascend Therapeutics US, LLC-2124710

PATIENT
  Age: 50 Year
  Sex: Female
  Weight: 63 kg

DRUGS (4)
  1. ESTROGEL [Suspect]
     Active Substance: ESTRADIOL
     Indication: Menopausal symptoms
     Route: 061
     Dates: start: 20210112, end: 20210120
  2. ESTROGEL [Suspect]
     Active Substance: ESTRADIOL
  3. ESTRADIOL [Suspect]
     Active Substance: ESTRADIOL
     Route: 061
     Dates: start: 20210112, end: 20210120
  4. UTROGESTAN(PROGESTERONE) [Concomitant]
     Route: 065

REACTIONS (6)
  - Arthralgia [Unknown]
  - Anxiety [Unknown]
  - Night sweats [Unknown]
  - Fatigue [Unknown]
  - Product substitution issue [Unknown]
  - Drug ineffective [None]

NARRATIVE: CASE EVENT DATE: 20210112
